FAERS Safety Report 14387264 (Version 6)
Quarter: 2019Q4

REPORT INFORMATION
  Report Type: Spontaneous
  Country: US (occurrence: US)
  Receive Date: 20180115
  Receipt Date: 20191030
  Transmission Date: 20200122
  Serious: No
  Sender: FDA-Public Use
  Company Number: US-ACTELION-A-NJ2017-160562

PATIENT
  Age: 88 Year
  Sex: Female
  Weight: 63.49 kg

DRUGS (3)
  1. TRACLEER [Suspect]
     Active Substance: BOSENTAN
     Indication: PULMONARY HYPERTENSION
     Dosage: 125 MG, BID
     Route: 048
     Dates: start: 20120418
  2. FENTANYL. [Interacting]
     Active Substance: FENTANYL
     Indication: PRODUCT USED FOR UNKNOWN INDICATION
     Dosage: UNK
     Route: 065
     Dates: start: 201709
  3. WARFARIN [Concomitant]
     Active Substance: WARFARIN

REACTIONS (12)
  - Hypoacusis [Unknown]
  - Oral disorder [Unknown]
  - Pain [Unknown]
  - Sciatica [Unknown]
  - Fatigue [Unknown]
  - Herpes zoster [Unknown]
  - Gait disturbance [Unknown]
  - Bedridden [Unknown]
  - Parathyroid disorder [Unknown]
  - Muscular weakness [Not Recovered/Not Resolved]
  - Dizziness [Unknown]
  - Dyspnoea [Unknown]

NARRATIVE: CASE EVENT DATE: 20170918
